FAERS Safety Report 6038350-8 (Version None)
Quarter: 2009Q1

REPORT INFORMATION
  Report Type: 
  Country: None (occurrence: None)
  Receive Date: 20090113
  Receipt Date: 20090113
  Transmission Date: 20090719
  Serious: Yes (Other)
  Sender: FDA-Public Use
  Company Number: None

PATIENT
  Sex: Male
  Weight: 82.5547 kg

DRUGS (1)
  1. ADVAIR DISKUS 500/50 [Suspect]
     Indication: CHRONIC OBSTRUCTIVE PULMONARY DISEASE
     Dosage: 1 INHALE 2/DAY
     Route: 055
     Dates: start: 20060701, end: 20080111

REACTIONS (1)
  - MUSCLE SPASMS [None]
